FAERS Safety Report 15672653 (Version 7)
Quarter: 2020Q2

REPORT INFORMATION
  Report Type: Report from Study
  Country: US (occurrence: US)
  Receive Date: 20181129
  Receipt Date: 20200525
  Transmission Date: 20200713
  Serious: Yes (Other)
  Sender: FDA-Public Use
  Company Number: US-TESARO-US-2018TSO01742

PATIENT
  Age: 67 Year
  Sex: Female

DRUGS (9)
  1. NIRAPARIB CAPSULE [Suspect]
     Active Substance: NIRAPARIB
     Dosage: 100 MG, QD, AM WITH FOOD
     Route: 065
  2. NIRAPARIB CAPSULE [Suspect]
     Active Substance: NIRAPARIB
     Dosage: 100 MG, DAILY AM WITH FOOD
  3. NIRAPARIB CAPSULE [Suspect]
     Active Substance: NIRAPARIB
     Indication: FALLOPIAN TUBE CANCER
     Dosage: 300 MG, QD
     Route: 048
     Dates: start: 20180319
  4. NIRAPARIB CAPSULE [Suspect]
     Active Substance: NIRAPARIB
     Dosage: 100 MG, QD, AM WITH FOOD
     Route: 065
     Dates: start: 201902
  5. NIRAPARIB CAPSULE [Suspect]
     Active Substance: NIRAPARIB
     Dosage: 100 MG, QD
     Route: 048
  6. NIRAPARIB CAPSULE [Suspect]
     Active Substance: NIRAPARIB
     Dosage: 100 MG, QD
     Dates: start: 20190331, end: 20200126
  7. NIRAPARIB CAPSULE [Suspect]
     Active Substance: NIRAPARIB
     Indication: OVARIAN CANCER
     Dosage: 200 MG, QD (IN AM WITH FOOD)
     Route: 048
     Dates: start: 20180418
  8. NIRAPARIB CAPSULE [Suspect]
     Active Substance: NIRAPARIB
     Dosage: 100 MG, EVERY MORNING AFTER BREAKFAST
  9. NIRAPARIB CAPSULE [Suspect]
     Active Substance: NIRAPARIB
     Dosage: 100 MG, QD
     Dates: end: 20200509

REACTIONS (11)
  - Nausea [Not Recovered/Not Resolved]
  - Intentional underdose [Unknown]
  - Back injury [Unknown]
  - Neoplasm [Unknown]
  - Product dose omission [Unknown]
  - Basal cell carcinoma [Not Recovered/Not Resolved]
  - Blood pressure increased [Recovered/Resolved]
  - Hypertension [Recovered/Resolved]
  - Emotional distress [Unknown]
  - Blood pressure fluctuation [Recovered/Resolved]
  - Platelet count decreased [Recovered/Resolved]

NARRATIVE: CASE EVENT DATE: 20180319
